FAERS Safety Report 11156327 (Version 1)
Quarter: 2015Q2

REPORT INFORMATION
  Report Type: Other
  Country: GB (occurrence: GB)
  Receive Date: 20150602
  Receipt Date: 20150602
  Transmission Date: 20150821
  Serious: Yes (Death, Hospitalization, Other)
  Sender: FDA-Public Use
  Company Number: GB-MYLANLABS-2015M1009059

PATIENT

DRUGS (6)
  1. AVASTIN [Suspect]
     Active Substance: BEVACIZUMAB
     Indication: ADENOCARCINOMA GASTRIC
     Dosage: LAST DOSE PRIOR TO SAE: 11 JUNE 2010 LAST DOSE PRIOR TO ABDOMINAL PAIN: 02/NOV/2009
     Route: 042
     Dates: start: 20090911
  2. AVASTIN [Suspect]
     Active Substance: BEVACIZUMAB
     Dosage: UNK
     Route: 042
  3. CISPLATIN. [Suspect]
     Active Substance: CISPLATIN
     Indication: ADENOCARCINOMA GASTRIC
     Dosage: LAST DOSE ON 02/NOV/2009
     Route: 042
     Dates: start: 20090911
  4. XELODA [Suspect]
     Active Substance: CAPECITABINE
     Indication: ADENOCARCINOMA GASTRIC
     Dosage: 35000 UNK, UNK
     Route: 048
     Dates: start: 20090911
  5. EPIRUBICIN [Suspect]
     Active Substance: EPIRUBICIN
     Indication: ADENOCARCINOMA GASTRIC
     Dosage: LAST DOSE ON 02/NOV/2009
     Route: 042
     Dates: start: 20090911
  6. XELODA [Suspect]
     Active Substance: CAPECITABINE
     Dosage: DOSE: 52500. LAST DOSE PRIOR TO SAE: 02 NOVEMBER 2009.
     Route: 048

REACTIONS (5)
  - Abdominal pain [Fatal]
  - Retching [Unknown]
  - Abdominal adhesions [Unknown]
  - Nausea [Unknown]
  - Abdominal pain [Recovered/Resolved]

NARRATIVE: CASE EVENT DATE: 20100316
